FAERS Safety Report 20846693 (Version 2)
Quarter: 2022Q2

REPORT INFORMATION
  Report Type: Spontaneous
  Country: US (occurrence: US)
  Receive Date: 20220519
  Receipt Date: 20220620
  Transmission Date: 20220721
  Serious: Yes (Other)
  Sender: FDA-Public Use
  Company Number: US-BIOGEN-2022BI01123505

PATIENT
  Sex: Male

DRUGS (1)
  1. VUMERITY [Suspect]
     Active Substance: DIROXIMEL FUMARATE
     Indication: Multiple sclerosis
     Route: 065
     Dates: start: 20220323, end: 20220512

REACTIONS (11)
  - Spinal fracture [Unknown]
  - Cervical vertebral fracture [Unknown]
  - Sternal fracture [Unknown]
  - Osteoporosis [Unknown]
  - Foot fracture [Unknown]
  - Hand fracture [Unknown]
  - Rib fracture [Unknown]
  - Clavicle fracture [Unknown]
  - Hypertension [Unknown]
  - Blood cholesterol abnormal [Unknown]
  - Herpes zoster [Unknown]
